FAERS Safety Report 9391708 (Version 2)
Quarter: 2013Q3

REPORT INFORMATION
  Report Type: Spontaneous
  Country: FR (occurrence: FR)
  Receive Date: 20130709
  Receipt Date: 20130813
  Transmission Date: 20140515
  Serious: Yes (Death)
  Sender: FDA-Public Use
  Company Number: PHHY2013FR072007

PATIENT
  Age: 73 Year
  Sex: Male

DRUGS (8)
  1. PACLITAXEL [Suspect]
     Indication: CHEMOTHERAPY
     Dosage: 128 MG, UNK
     Route: 042
     Dates: start: 20130404, end: 20130411
  2. CARBOPLATIN HOSPIRA [Suspect]
     Indication: CHEMOTHERAPY
     Dosage: 541 MG, UNK
     Route: 042
     Dates: start: 20130404, end: 20130404
  3. SELOKEN [Concomitant]
     Dosage: 100 MG, QD
     Route: 048
     Dates: start: 201302, end: 20130418
  4. KARDEGIC [Concomitant]
     Dosage: 75 MG, QD
     Route: 048
     Dates: start: 201302, end: 20130418
  5. TORENTAL [Concomitant]
     Dosage: 600 MG, TID
     Route: 048
     Dates: start: 201302, end: 20130418
  6. LISINOPRIL [Concomitant]
     Dosage: 20 MG, UNK
     Route: 048
     Dates: start: 201302, end: 20130418
  7. CRESTOR [Concomitant]
     Dosage: 1 DF IN THE EVENING
     Route: 048
     Dates: start: 201302, end: 20130418
  8. GLUCOPHAGE [Concomitant]
     Dosage: 1 DF, TID
     Route: 048
     Dates: start: 201302, end: 20130418

REACTIONS (1)
  - Febrile bone marrow aplasia [Fatal]
